FAERS Safety Report 7831122-0 (Version None)
Quarter: 2011Q4

REPORT INFORMATION
  Report Type: 
  Country: None (occurrence: None)
  Receive Date: 20111021
  Receipt Date: 20111018
  Transmission Date: 20120403
  Serious: Yes (Other)
  Sender: FDA-Public Use
  Company Number: US-ROXANE LABORATORIES, INC.-2011-RO-01498RO

PATIENT
  Age: 3 Decade
  Sex: Female

DRUGS (3)
  1. ULORIC [Suspect]
     Route: 048
     Dates: start: 20110101
  2. MYCOPHENOLATE MOFETIL (CELLCEPT) [Suspect]
     Indication: IMMUNOSUPPRESSION
  3. PREDNISONE [Suspect]

REACTIONS (1)
  - RENAL FAILURE ACUTE [None]
